FAERS Safety Report 5130598-X (Version None)
Quarter: 2006Q4

REPORT INFORMATION
  Report Type: 
  Country: None (occurrence: None)
  Receive Date: 20061017
  Receipt Date: 20061017
  Transmission Date: 20070319
  Serious: Yes (Hospitalization)
  Sender: FDA-Public Use
  Company Number: None

PATIENT
  Age: 75 Year
  Sex: Male

DRUGS (3)
  1. FLEET PREP KIT 1 [Suspect]
     Indication: DRUG USE FOR UNKNOWN INDICATION
     Dosage: 45 ML;X1;PO
     Route: 048
     Dates: start: 20060428, end: 20060428
  2. METOPROLOL TARTRATE [Concomitant]
  3. HYDROCHLOROTHIAZIDE [Concomitant]

REACTIONS (15)
  - ARTHRITIS [None]
  - BLOOD BICARBONATE INCREASED [None]
  - BLOOD CHLORIDE DECREASED [None]
  - BLOOD SODIUM DECREASED [None]
  - CONTUSION [None]
  - ECCHYMOSIS [None]
  - EXCORIATION [None]
  - FALL [None]
  - HAEMATOCRIT DECREASED [None]
  - HEAD INJURY [None]
  - HYPOKALAEMIA [None]
  - JOINT DISLOCATION [None]
  - LOSS OF CONSCIOUSNESS [None]
  - SYNCOPE VASOVAGAL [None]
  - WHITE BLOOD CELL COUNT INCREASED [None]
